FAERS Safety Report 24039757 (Version 1)
Quarter: 2024Q3

REPORT INFORMATION
  Report Type: Spontaneous
  Country: CN (occurrence: CN)
  Receive Date: 20240702
  Receipt Date: 20240702
  Transmission Date: 20241017
  Serious: Yes (Hospitalization)
  Sender: RANBAXY
  Company Number: CN-SUN PHARMACEUTICAL INDUSTRIES LTD-2024R1-453140

PATIENT
  Sex: Male
  Weight: 60 kg

DRUGS (2)
  1. PALIPERIDONE [Suspect]
     Active Substance: PALIPERIDONE
     Indication: Neuropsychological symptoms
     Dosage: 3.0 MILLIGRAM, BID
     Route: 048
     Dates: start: 20240510, end: 20240612
  2. ATROPINE [Concomitant]
     Active Substance: ATROPINE
     Indication: Symptomatic treatment
     Dosage: 1 TABLET, TID
     Route: 048

REACTIONS (1)
  - Heart rate decreased [Recovering/Resolving]
